FAERS Safety Report 7157116-9 (Version None)
Quarter: 2010Q4

REPORT INFORMATION
  Report Type: 
  Country: None (occurrence: None)
  Receive Date: 20101214
  Receipt Date: 20100106
  Transmission Date: 20110411
  Serious: Yes (Life-Threatening, Hospitalization)
  Sender: FDA-Public Use
  Company Number: US-ASTRAZENECA-2010SE00669

PATIENT
  Age: 70 Year
  Sex: Male

DRUGS (2)
  1. CRESTOR [Suspect]
     Route: 048
  2. NIASPAN [Concomitant]

REACTIONS (3)
  - HEPATIC ENZYME INCREASED [None]
  - HEPATITIS [None]
  - MYOPATHY [None]
